FAERS Safety Report 19878931 (Version 3)
Quarter: 2022Q1

REPORT INFORMATION
  Report Type: Report from Study
  Country: BR (occurrence: BR)
  Receive Date: 20210924
  Receipt Date: 20220123
  Transmission Date: 20220423
  Serious: Yes (Other)
  Sender: FDA-Public Use
  Company Number: BR-ABBVIE-21K-020-4090733-00

PATIENT
  Sex: Female
  Weight: 65 kg

DRUGS (3)
  1. SKYRIZI [Suspect]
     Active Substance: RISANKIZUMAB-RZAA
     Indication: Psoriasis
     Dosage: WEEK 0
     Route: 058
     Dates: start: 20210524, end: 20210524
  2. SKYRIZI [Suspect]
     Active Substance: RISANKIZUMAB-RZAA
     Dosage: WEEK 04
     Route: 058
     Dates: start: 202106, end: 202106
  3. SKYRIZI [Suspect]
     Active Substance: RISANKIZUMAB-RZAA
     Route: 058
     Dates: start: 202109, end: 202109

REACTIONS (8)
  - Appendicitis [Recovering/Resolving]
  - Post procedural infection [Recovered/Resolved]
  - Laboratory test abnormal [Not Recovered/Not Resolved]
  - Impaired healing [Unknown]
  - Malaise [Recovered/Resolved]
  - Influenza [Recovered/Resolved]
  - Blood cholesterol increased [Unknown]
  - Drug ineffective [Unknown]

NARRATIVE: CASE EVENT DATE: 20210101
